FAERS Safety Report 25280240 (Version 2)
Quarter: 2025Q2

REPORT INFORMATION
  Report Type: Spontaneous
  Country: US (occurrence: US)
  Receive Date: 20250507
  Receipt Date: 20250511
  Transmission Date: 20250716
  Serious: No
  Sender: TIANJIN TIANYAO PHARMACEUTICALS CO.,LTD.
  Company Number: US-tianyaoyaoye-2024-tjpc-000002

PATIENT

DRUGS (1)
  1. METHYLPREDNISOLONE [Suspect]
     Active Substance: METHYLPREDNISOLONE
     Indication: Musculoskeletal discomfort
     Route: 048

REACTIONS (1)
  - Product ineffective [Unknown]
